FAERS Safety Report 7238868-6 (Version None)
Quarter: 2011Q1

REPORT INFORMATION
  Report Type: 
  Country: None (occurrence: None)
  Receive Date: 20110121
  Receipt Date: 20110117
  Transmission Date: 20110831
  Serious: Yes (Death, Other)
  Sender: FDA-Public Use
  Company Number: PHHY2011HU03366

PATIENT
  Age: 48 Year
  Sex: Female

DRUGS (2)
  1. ETOPOSIDE [Interacting]
     Indication: LEUKAEMIA MONOCYTIC
  2. CYTARABINE [Suspect]
     Indication: LEUKAEMIA MONOCYTIC

REACTIONS (4)
  - PANCYTOPENIA [None]
  - MOUTH HAEMORRHAGE [None]
  - FEBRILE NEUTROPENIA [None]
  - DRUG INTERACTION [None]
